FAERS Safety Report 10051160 (Version 1)
Quarter: 2014Q2

REPORT INFORMATION
  Report Type: Spontaneous
  Country: IT (occurrence: IT)
  Receive Date: 20140401
  Receipt Date: 20140401
  Transmission Date: 20141212
  Serious: Yes (Hospitalization)
  Sender: FDA-Public Use
  Company Number: PHHY2014IT036488

PATIENT
  Age: 60 Year
  Sex: Male

DRUGS (4)
  1. PREDNISONE [Suspect]
     Indication: PROSTATE CANCER METASTATIC
     Dosage: 12.5 MG, QD
  2. BICALUTAMIDE [Suspect]
     Indication: PROSTATE CANCER METASTATIC
     Dosage: UNK UKN, UNK
     Dates: start: 200905, end: 201104
  3. DOCETAXEL [Suspect]
     Indication: PROSTATE CANCER METASTATIC
  4. CABAZITAXEL [Suspect]
     Indication: PROSTATE CANCER METASTATIC
     Dosage: UNK UKN, UNK
     Dates: start: 201204

REACTIONS (12)
  - Intracranial pressure increased [Recovered/Resolved]
  - Eye pain [Recovered/Resolved]
  - Weight increased [Recovering/Resolving]
  - Photophobia [Recovered/Resolved]
  - Tinnitus [Recovered/Resolved]
  - Nausea [Recovered/Resolved]
  - Visual acuity reduced [Recovered/Resolved]
  - Blindness [Recovered/Resolved]
  - Papilloedema [Recovered/Resolved]
  - Fluid retention [Recovered/Resolved]
  - Prostate cancer [Recovering/Resolving]
  - Metastases to bone [Recovering/Resolving]
